FAERS Safety Report 5991679-1 (Version None)
Quarter: 2008Q4

REPORT INFORMATION
  Report Type: 
  Country: None (occurrence: None)
  Receive Date: 20081211
  Receipt Date: 20081208
  Transmission Date: 20090506
  Serious: Yes (Hospitalization)
  Sender: FDA-Public Use
  Company Number: FR-ROCHE-601316

PATIENT
  Sex: Female

DRUGS (2)
  1. RIVOTRIL [Suspect]
     Route: 048
  2. AUGMENTIN '125' [Suspect]
     Indication: BRONCHITIS
     Route: 048

REACTIONS (1)
  - HEPATITIS [None]
